FAERS Safety Report 24633108 (Version 1)
Quarter: 2024Q4

REPORT INFORMATION
  Report Type: Spontaneous
  Country: GR (occurrence: GR)
  Receive Date: 20241118
  Receipt Date: 20241118
  Transmission Date: 20250115
  Serious: Yes (Other)
  Sender: REGENERON
  Company Number: GR-REGENERON PHARMACEUTICALS, INC.-2024-156436

PATIENT
  Age: 65 Year
  Sex: Female

DRUGS (4)
  1. LIBTAYO [Suspect]
     Active Substance: CEMIPLIMAB-RWLC
     Indication: Non-small cell lung cancer
     Dosage: UNK
     Route: 042
     Dates: start: 20231201, end: 202405
  2. LIBTAYO [Suspect]
     Active Substance: CEMIPLIMAB-RWLC
     Dosage: UNK
     Route: 042
     Dates: start: 202408
  3. CARBOPLATIN [Concomitant]
     Active Substance: CARBOPLATIN
     Indication: Squamous cell carcinoma of lung
     Dosage: UNK
     Dates: start: 202405
  4. PACLITAXEL [Concomitant]
     Active Substance: PACLITAXEL
     Indication: Squamous cell carcinoma of lung
     Dosage: UNK
     Dates: start: 202405

REACTIONS (4)
  - Disease progression [Recovering/Resolving]
  - Superior vena cava occlusion [Unknown]
  - Lymphadenopathy [Unknown]
  - Inflammation [Unknown]

NARRATIVE: CASE EVENT DATE: 20240201
